FAERS Safety Report 5426064-4 (Version None)
Quarter: 2007Q3

REPORT INFORMATION
  Report Type: 
  Country: None (occurrence: None)
  Receive Date: 20070824
  Receipt Date: 20070824
  Transmission Date: 20080115
  Serious: Yes (Life-Threatening)
  Sender: FDA-Public Use
  Company Number: None

PATIENT
  Sex: Female
  Weight: 89.8122 kg

DRUGS (10)
  1. BEVACIZUMAB [Suspect]
     Indication: BILE DUCT CANCER
     Dosage: 10MG/KG EVERY 15 DAYS IV
     Route: 042
     Dates: start: 20070710, end: 20070807
  2. HYDROCHLOROTHIAZIDE [Concomitant]
  3. LEVOXYL [Concomitant]
  4. OXYCONTIN [Concomitant]
  5. OXYCODONE HCL [Concomitant]
  6. MILK OF MAGNESIA [Concomitant]
  7. TYLENOL (CAPLET) [Concomitant]
  8. SENNA [Concomitant]
  9. COLACE [Concomitant]
  10. LOVENOX [Concomitant]

REACTIONS (1)
  - PULMONARY EMBOLISM [None]
